FAERS Safety Report 6410974-5 (Version None)
Quarter: 2009Q4

REPORT INFORMATION
  Report Type: 
  Country: None (occurrence: None)
  Receive Date: 20091020
  Receipt Date: 20091020
  Transmission Date: 20100525
  Serious: No
  Sender: FDA-Public Use
  Company Number: None

PATIENT
  Age: 76 Year
  Sex: Female
  Weight: 41.7309 kg

DRUGS (8)
  1. ACULAR [Suspect]
     Indication: CATARACT OPERATION
     Dosage: 1 DROP B.I.D. R. EYE
     Dates: start: 20090809
  2. ACULAR [Suspect]
     Indication: CATARACT OPERATION
     Dosage: 1 DROP B.I.D. R. EYE
     Dates: start: 20090810
  3. ACULAR [Suspect]
     Indication: CATARACT OPERATION
     Dosage: 1 DROP B.I.D. R. EYE
     Dates: start: 20090810
  4. ACULAR [Suspect]
     Indication: CATARACT OPERATION
     Dosage: 1 DROP B.I.D. R. EYE
     Dates: start: 20090810
  5. ACULAR [Suspect]
     Indication: CATARACT OPERATION
     Dosage: 1 DROP B.I.D. R. EYE
     Dates: start: 20090810
  6. ACULAR [Suspect]
     Indication: CATARACT OPERATION
     Dosage: 1 DROP B.I.D. R. EYE
     Dates: start: 20090812
  7. ACULAR [Suspect]
     Indication: CATARACT OPERATION
     Dosage: 1 DROP B.I.D. R. EYE
     Dates: start: 20090812
  8. ACULAR [Suspect]
     Indication: CATARACT OPERATION
     Dosage: 1 DROP B.I.D. R. EYE
     Dates: start: 20090812

REACTIONS (4)
  - EYE INFLAMMATION [None]
  - EYE PAIN [None]
  - VISION BLURRED [None]
  - VISUAL ACUITY REDUCED [None]
